FAERS Safety Report 8564361-4 (Version None)
Quarter: 2012Q3

REPORT INFORMATION
  Report Type: 
  Country: None (occurrence: None)
  Receive Date: 20120803
  Receipt Date: 20120725
  Transmission Date: 20120928
  Serious: Yes (Other)
  Sender: FDA-Public Use
  Company Number: US-ASTELLAS-2012US005902

PATIENT
  Sex: Female

DRUGS (1)
  1. PROGRAF [Suspect]
     Indication: RENAL TRANSPLANT
     Dosage: 4 MG, UNKNOWN/D
     Route: 048
     Dates: start: 20110707

REACTIONS (5)
  - WEIGHT DECREASED [None]
  - GENERALISED ERYTHEMA [None]
  - BONE PAIN [None]
  - ALOPECIA [None]
  - FEELING HOT [None]
